FAERS Safety Report 12721359 (Version 1)
Quarter: 2016Q3

REPORT INFORMATION
  Report Type: Report from Study
  Country: CO (occurrence: CO)
  Receive Date: 20160907
  Receipt Date: 20160907
  Transmission Date: 20161109
  Serious: Yes (Other)
  Sender: FDA-Public Use
  Company Number: CO-SA-2016SA163082

PATIENT
  Age: 60 Year
  Sex: Female
  Weight: 71 kg

DRUGS (1)
  1. LEMTRADA [Suspect]
     Active Substance: ALEMTUZUMAB
     Indication: MULTIPLE SCLEROSIS
     Route: 041
     Dates: start: 201601, end: 20160118

REACTIONS (3)
  - Cough [Recovering/Resolving]
  - Leukopenia [Not Recovered/Not Resolved]
  - Tracheitis [Recovering/Resolving]

NARRATIVE: CASE EVENT DATE: 201603
